FAERS Safety Report 7712980-7 (Version None)
Quarter: 2011Q3

REPORT INFORMATION
  Report Type: 
  Country: None (occurrence: None)
  Receive Date: 20110826
  Receipt Date: 20110824
  Transmission Date: 20111222
  Serious: Yes (Other)
  Sender: FDA-Public Use
  Company Number: US-ABBOTT-11P-163-0734693-00

PATIENT
  Sex: Female
  Weight: 53.572 kg

DRUGS (4)
  1. HUMIRA [Suspect]
     Indication: RHEUMATOID ARTHRITIS
     Route: 058
     Dates: start: 20110619, end: 20110619
  2. TRAMADOL HCL [Concomitant]
     Indication: RHEUMATOID ARTHRITIS
  3. VIMOVO [Concomitant]
     Indication: RHEUMATOID ARTHRITIS
  4. NAPROXEN (ALEVE) [Concomitant]
     Indication: RHEUMATOID ARTHRITIS

REACTIONS (6)
  - SWOLLEN TONGUE [None]
  - DYSPHAGIA [None]
  - DYSPNOEA [None]
  - URTICARIA [None]
  - PHARYNGEAL OEDEMA [None]
  - SKIN ODOUR ABNORMAL [None]
